FAERS Safety Report 17105500 (Version 2)
Quarter: 2020Q1

REPORT INFORMATION
  Report Type: Report from Study
  Country: BR (occurrence: BR)
  Receive Date: 20191203
  Receipt Date: 20200302
  Transmission Date: 20200409
  Serious: Yes (Death, Hospitalization, Other)
  Sender: FDA-Public Use
  Company Number: PHHY2018BR197842

PATIENT
  Sex: Male
  Weight: 100 kg

DRUGS (1)
  1. COSENTYX [Suspect]
     Active Substance: SECUKINUMAB
     Indication: PSORIATIC ARTHROPATHY
     Dosage: 300 MG, QMO
     Route: 058

REACTIONS (7)
  - Nephrolithiasis [Unknown]
  - Musculoskeletal stiffness [Recovering/Resolving]
  - Hepatic cirrhosis [Unknown]
  - Death [Fatal]
  - Skin discolouration [Recovering/Resolving]
  - Platelet count decreased [Unknown]
  - Pain in extremity [Recovering/Resolving]
